FAERS Safety Report 7547104-2 (Version None)
Quarter: 2011Q2

REPORT INFORMATION
  Report Type: 
  Country: None (occurrence: None)
  Receive Date: 20110614
  Receipt Date: 20110603
  Transmission Date: 20111010
  Serious: Yes (Other)
  Sender: FDA-Public Use
  Company Number: US-BAYER-2011-048822

PATIENT
  Sex: Male

DRUGS (1)
  1. ONE-A-DAY MEN'S HEALTH [Suspect]
     Indication: VITAMIN SUPPLEMENTATION
     Dosage: 1 DF, IRR
     Route: 048
     Dates: start: 20110501

REACTIONS (6)
  - HYPERSENSITIVITY [None]
  - VISION BLURRED [None]
  - DYSPNOEA [None]
  - MUSCULAR WEAKNESS [None]
  - CHEST DISCOMFORT [None]
  - MUSCLE SPASMS [None]
